FAERS Safety Report 5116636-9 (Version None)
Quarter: 2006Q3

REPORT INFORMATION
  Report Type: 
  Country: None (occurrence: None)
  Receive Date: 20060928
  Receipt Date: 20060925
  Transmission Date: 20061208
  Serious: Yes (Other)
  Sender: FDA-Public Use
  Company Number: US-GLAXOSMITHKLINE-A0621308A

PATIENT
  Age: 64 Year
  Sex: Male

DRUGS (2)
  1. WELLBUTRIN [Suspect]
     Indication: DEPRESSION
     Dosage: 75MG TWICE PER DAY
     Route: 048
     Dates: start: 20060801, end: 20060924
  2. NORVASC [Concomitant]

REACTIONS (4)
  - AGITATION [None]
  - ATRIAL FIBRILLATION [None]
  - CHILLS [None]
  - HYPERHIDROSIS [None]
